FAERS Safety Report 24828556 (Version 1)
Quarter: 2025Q1

REPORT INFORMATION
  Report Type: Spontaneous
  Country: FR (occurrence: FR)
  Receive Date: 20250110
  Receipt Date: 20250110
  Transmission Date: 20250408
  Serious: Yes (Life-Threatening, Other)
  Sender: AUROBINDO
  Company Number: FR-AFSSAPS-DJ2024001414

PATIENT
  Age: 58 Year
  Sex: Male
  Weight: 65 kg

DRUGS (20)
  1. LENALIDOMIDE [Suspect]
     Active Substance: LENALIDOMIDE
     Indication: Follicular lymphoma
     Dosage: 20 MILLIGRAM, ONCE A DAY
     Route: 048
     Dates: start: 20210302, end: 20210714
  2. GEMCITABINE [Suspect]
     Active Substance: GEMCITABINE
     Indication: Follicular lymphoma
     Route: 042
     Dates: start: 20220105, end: 20220214
  3. RITUXIMAB [Suspect]
     Active Substance: RITUXIMAB
     Indication: B-cell lymphoma
     Route: 042
     Dates: start: 20160118, end: 20160307
  4. CYCLOPHOSPHAMIDE [Suspect]
     Active Substance: CYCLOPHOSPHAMIDE
     Indication: B-cell lymphoma
     Route: 042
     Dates: start: 20160118, end: 20160307
  5. VINDESINE SULFATE [Suspect]
     Active Substance: VINDESINE SULFATE
     Indication: B-cell lymphoma
     Route: 042
     Dates: start: 20160118, end: 20160307
  6. BLEOMYCIN SULFATE [Suspect]
     Active Substance: BLEOMYCIN SULFATE
     Indication: B-cell lymphoma
     Route: 042
     Dates: start: 20160118, end: 20160307
  7. METHOTREXATE [Suspect]
     Active Substance: METHOTREXATE
     Indication: B-cell lymphoma
     Route: 037
     Dates: start: 20160118, end: 20160307
  8. METHOTREXATE [Suspect]
     Active Substance: METHOTREXATE
     Route: 042
     Dates: start: 20160406, end: 20160427
  9. IFOSFAMIDE [Suspect]
     Active Substance: IFOSFAMIDE
     Indication: B-cell lymphoma
     Route: 042
     Dates: start: 20160518, end: 20160629
  10. ETOPOSIDE [Suspect]
     Active Substance: ETOPOSIDE
     Indication: B-cell lymphoma
     Route: 042
     Dates: start: 20160518, end: 20160629
  11. CYTARABINE [Suspect]
     Active Substance: CYTARABINE
     Indication: B-cell lymphoma
     Route: 058
     Dates: start: 20160713, end: 20160730
  12. OBINUTUZUMAB [Suspect]
     Active Substance: OBINUTUZUMAB
     Indication: Follicular lymphoma
     Route: 042
     Dates: start: 20190603, end: 20190912
  13. ATEZOLIZUMAB [Suspect]
     Active Substance: ATEZOLIZUMAB
     Indication: Follicular lymphoma
     Route: 042
     Dates: start: 20190603, end: 20190912
  14. VENETOCLAX [Suspect]
     Active Substance: VENETOCLAX
     Indication: Follicular lymphoma
     Dosage: 800 MILLIGRAM, ONCE A DAY
     Route: 048
     Dates: start: 20190603, end: 20191002
  15. ETOPOSIDE [Suspect]
     Active Substance: ETOPOSIDE
     Indication: Follicular lymphoma
     Route: 042
     Dates: start: 20210302, end: 20210701
  16. IDELALISIB [Suspect]
     Active Substance: IDELALISIB
     Indication: Follicular lymphoma
     Dosage: 300 MILLIGRAM, ONCE A DAY
     Route: 048
     Dates: start: 20210720, end: 20211020
  17. VINORELBINE TARTRATE [Suspect]
     Active Substance: VINORELBINE TARTRATE
     Indication: Follicular lymphoma
     Route: 042
     Dates: start: 20220105, end: 20220214
  18. DOXORUBICIN [Suspect]
     Active Substance: DOXORUBICIN
     Indication: Follicular lymphoma
     Route: 042
     Dates: start: 20220105, end: 20220214
  19. FLUDARABINE PHOSPHATE [Suspect]
     Active Substance: FLUDARABINE PHOSPHATE
     Indication: Follicular lymphoma
     Route: 042
     Dates: start: 20220324, end: 20220326
  20. KYMRIAH [Suspect]
     Active Substance: TISAGENLECLEUCEL
     Indication: Follicular lymphoma
     Route: 042
     Dates: start: 20220329, end: 20220329

REACTIONS (1)
  - Acute myeloid leukaemia [Not Recovered/Not Resolved]

NARRATIVE: CASE EVENT DATE: 20231201
